FAERS Safety Report 20899935 (Version 1)
Quarter: 2022Q2

REPORT INFORMATION
  Report Type: Spontaneous
  Country: US (occurrence: US)
  Receive Date: 20220601
  Receipt Date: 20220601
  Transmission Date: 20220720
  Serious: No
  Sender: FDA-Public Use
  Company Number: US-ALKEM LABORATORIES LIMITED-CH-ALKEM-2022-01115

PATIENT
  Age: 32 Year
  Sex: Female

DRUGS (3)
  1. NIMODIPINE [Suspect]
     Active Substance: NIMODIPINE
     Indication: Product used for unknown indication
     Dosage: UNK
     Route: 048
  2. NICARDIPINE [Suspect]
     Active Substance: NICARDIPINE
     Indication: Product used for unknown indication
     Dosage: UNK
     Route: 048
  3. VERAPAMIL [Suspect]
     Active Substance: VERAPAMIL HYDROCHLORIDE
     Indication: Product used for unknown indication
     Dosage: UNK
     Route: 048

REACTIONS (1)
  - Drug ineffective [Unknown]
